FAERS Safety Report 5546443-4 (Version None)
Quarter: 2007Q4

REPORT INFORMATION
  Report Type: 
  Country: None (occurrence: None)
  Receive Date: 20071206
  Receipt Date: 20071206
  Transmission Date: 20080405
  Serious: Yes (Life-Threatening, Hospitalization)
  Sender: FDA-Public Use
  Company Number: None

PATIENT
  Sex: Female
  Weight: 75 kg

DRUGS (22)
  1. MINOXIDIL [Suspect]
     Indication: HYPERTENSION
     Dosage: 10 MG  ONCE  PO
     Route: 048
     Dates: start: 20071002, end: 20071003
  2. LOSARTAN POTASSIUM [Concomitant]
  3. FOSINOPRIL SODIUM [Concomitant]
  4. AMLODIPINE [Concomitant]
  5. ATENOLOL [Concomitant]
  6. ISOSORBIDE MONONITRATE [Concomitant]
  7. HYDRALAZINE [Concomitant]
  8. PHOSLO [Concomitant]
  9. RENAGEL [Concomitant]
  10. GEMFIBROZIL [Concomitant]
  11. SIROLIMUS [Concomitant]
  12. CINACALCET [Concomitant]
  13. SYNTHROID [Concomitant]
  14. INDOMETHACIN [Concomitant]
  15. PROTONIX [Concomitant]
  16. ALLOPURINOL [Concomitant]
  17. ERGOCALCIFEROL [Concomitant]
  18. FLONASE [Concomitant]
  19. ALBUTEROL I [Concomitant]
  20. AZMACORT [Concomitant]
  21. ARANESP [Concomitant]
  22. ZEMPLAR [Concomitant]

REACTIONS (2)
  - ANGIOEDEMA [None]
  - ENDOTRACHEAL INTUBATION COMPLICATION [None]
